FAERS Safety Report 9079561 (Version 2)
Quarter: 2013Q1

REPORT INFORMATION
  Report Type: Spontaneous
  Country: FR (occurrence: FR)
  Receive Date: 20130215
  Receipt Date: 20130228
  Transmission Date: 20140127
  Serious: Yes (Other)
  Sender: FDA-Public Use
  Company Number: FR-PFIZER INC-2013034032

PATIENT
  Age: 53 Year
  Sex: Female
  Weight: 68 kg

DRUGS (5)
  1. ARACYTINE [Suspect]
     Indication: MYELODYSPLASTIC SYNDROME
     Dosage: 5400 MG, 2X/DAY
     Route: 042
     Dates: start: 20120330, end: 20120402
  2. AMSACRINE [Concomitant]
  3. INEXIUM [Concomitant]
  4. TRIFLUCAN [Concomitant]
  5. HYDREA [Concomitant]
     Dosage: 500 MG, UNK

REACTIONS (1)
  - Cerebellar syndrome [Recovered/Resolved]
